FAERS Safety Report 16858410 (Version 1)
Quarter: 2019Q3

REPORT INFORMATION
  Report Type: Spontaneous
  Country: US (occurrence: US)
  Receive Date: 20190805
  Receipt Date: 20190805
  Transmission Date: 20191005
  Serious: No
  Sender: FDA-Public Use
  Company Number: None

PATIENT
  Sex: Female

DRUGS (1)
  1. SIROLIMUS 1MG GREENSTONE [Suspect]
     Active Substance: SIROLIMUS
     Indication: RENAL TRANSPLANT
     Route: 048
     Dates: start: 20190507

REACTIONS (4)
  - Vomiting [None]
  - Heat exhaustion [None]
  - Malaise [None]
  - Fatigue [None]
